FAERS Safety Report 4713109-X (Version None)
Quarter: 2005Q3

REPORT INFORMATION
  Report Type: 
  Country: None (occurrence: None)
  Receive Date: 20050701
  Receipt Date: 20040628
  Transmission Date: 20060218
  Serious: Yes (Other)
  Sender: FDA-Public Use
  Company Number: 2004043577

PATIENT
  Age: 24 Year
  Sex: Male
  Weight: 115.6672 kg

DRUGS (1)
  1. ZOLOFT [Suspect]
     Indication: OBSESSIVE-COMPULSIVE DISORDER
     Dosage: 100 MG (100 MG, 1 IN 1 D) ORAL
     Route: 048
     Dates: start: 20040301

REACTIONS (6)
  - DYSGEUSIA [None]
  - EJACULATION DISORDER [None]
  - ERECTILE DYSFUNCTION [None]
  - INTENTIONAL MISUSE [None]
  - OBSESSIVE-COMPULSIVE DISORDER [None]
  - WEIGHT DECREASED [None]
